FAERS Safety Report 5585093-0 (Version None)
Quarter: 2008Q1

REPORT INFORMATION
  Report Type: 
  Country: None (occurrence: None)
  Receive Date: 20080109
  Receipt Date: 20080103
  Transmission Date: 20080703
  Serious: Yes (Hospitalization)
  Sender: FDA-Public Use
  Company Number: SE-BOEHRINGER INGELHEIM PHARMACEUTICALS, INC.-2007-SW-00320SW

PATIENT
  Sex: Male

DRUGS (9)
  1. SIFROL TAB 0.35 MG [Suspect]
     Indication: PARKINSON'S DISEASE
     Dates: start: 20030101, end: 20050620
  2. SIFROL TAB 0.35 MG [Suspect]
     Dates: start: 20050621
  3. MADOPARK [Concomitant]
     Indication: PARKINSON'S DISEASE
     Dosage: LAST INCREASE IN DOSE SEP2006
     Dates: start: 20030101
  4. METOPROLOL SUCCINATE [Concomitant]
     Indication: HYPERTENSION
     Dates: start: 19920101
  5. XANOR DEPOT [Concomitant]
     Indication: DEPRESSION
     Dates: start: 20030101
  6. ANTIHYPERTENSIVE MEDICINE [Concomitant]
     Indication: HYPERTENSION
     Dates: start: 20050101
  7. NITROMEX [Concomitant]
  8. PROPAVAN [Concomitant]
  9. OXASCAND [Concomitant]

REACTIONS (4)
  - DEPRESSION [None]
  - PATHOLOGICAL GAMBLING [None]
  - PERSONALITY DISORDER [None]
  - SUICIDAL IDEATION [None]
